FAERS Safety Report 6465186-6 (Version None)
Quarter: 2009Q4

REPORT INFORMATION
  Report Type: 
  Country: None (occurrence: None)
  Receive Date: 20091124
  Receipt Date: 20091111
  Transmission Date: 20100525
  Serious: Yes (Other)
  Sender: FDA-Public Use
  Company Number: ADR50772009

PATIENT
  Age: 79 Year
  Sex: Female

DRUGS (7)
  1. RISPERIDONE [Suspect]
     Dosage: 37.5 MG AND 50 MG - 1/2 WEEKS INTRAMUSCULAR
     Route: 030
     Dates: start: 20060910, end: 20061115
  2. LACTULOSE [Concomitant]
  3. PROCYCLIDINE HYDROCHLORIDE 2MG TAB [Concomitant]
  4. PROPRANOLOL [Concomitant]
  5. RISPERDAL [Concomitant]
  6. ZOPICLONE [Concomitant]
  7. CARBIMAZOLE [Concomitant]

REACTIONS (7)
  - CONDITION AGGRAVATED [None]
  - DRUG EFFECT DECREASED [None]
  - FLUSHING [None]
  - HEADACHE [None]
  - MALAISE [None]
  - TREMOR [None]
  - WEIGHT INCREASED [None]
